FAERS Safety Report 9264859 (Version 1)
Quarter: 2013Q2

REPORT INFORMATION
  Report Type: Report from Study
  Country: BR (occurrence: BR)
  Receive Date: 20130501
  Receipt Date: 20130501
  Transmission Date: 20140414
  Serious: Yes (Other)
  Sender: FDA-Public Use
  Company Number: PHHY2012BR071581

PATIENT
  Sex: Male

DRUGS (1)
  1. DIOVAN AMLO FIX [Suspect]
     Indication: HYPERTENSION
     Dosage: 1(80/5 MG) TABLET DAILY

REACTIONS (2)
  - Lung neoplasm malignant [Unknown]
  - Swelling [Recovered/Resolved]
